FAERS Safety Report 6077861-6 (Version None)
Quarter: 2009Q1

REPORT INFORMATION
  Report Type: 
  Country: None (occurrence: None)
  Receive Date: 20090213
  Receipt Date: 20090205
  Transmission Date: 20090719
  Serious: Yes (Life-Threatening, Hospitalization)
  Sender: FDA-Public Use
  Company Number: US-JNJFOC-20090202780

PATIENT
  Age: 44 Year
  Sex: Male
  Weight: 81.65 kg

DRUGS (5)
  1. REMICADE [Suspect]
     Indication: DRUG USE FOR UNKNOWN INDICATION
     Route: 042
  2. HUMIRA [Suspect]
     Indication: ANKYLOSING SPONDYLITIS
     Route: 058
  3. METHOTREXATE [Suspect]
     Indication: DRUG USE FOR UNKNOWN INDICATION
  4. ZOCOR [Concomitant]
  5. ESOMEPRAZOLE MAGNESIUM [Concomitant]

REACTIONS (2)
  - HISTOPLASMOSIS DISSEMINATED [None]
  - LIVER FUNCTION TEST ABNORMAL [None]
